FAERS Safety Report 8983240 (Version 1)
Quarter: 2012Q4

REPORT INFORMATION
  Report Type: 
  Country: US (occurrence: US)
  Receive Date: 20121212
  Receipt Date: 20121212
  Transmission Date: 20130627
  Serious: Yes (Death)
  Sender: FDA-Public Use
  Company Number: US-ASTELLAS-1120647

PATIENT
  Sex: Male
  Weight: 90.98 kg

DRUGS (12)
  1. TARCEVA [Suspect]
     Indication: LUNG NEOPLASM MALIGNANT
     Route: 065
  2. LOVENOX [Concomitant]
     Route: 065
  3. PERCOCET [Concomitant]
     Dosage: 1-2 EVERY 6 HOUR AS NEEDED
     Route: 065
  4. LANTUS [Concomitant]
     Dosage: 30 UNIT
     Route: 058
  5. NOVOLOG [Concomitant]
     Route: 065
  6. COMPAZINE [Concomitant]
     Route: 048
  7. POTASSIUM CHLORIDE [Concomitant]
     Route: 048
  8. LASIX [Concomitant]
     Route: 048
  9. DEMECLOCYCLINE HCL [Concomitant]
     Route: 048
  10. AMBIEN [Concomitant]
     Route: 065
  11. ADVAIR HFA [Concomitant]
     Dosage: 1 PUFF DAILY
     Route: 065
  12. PAXIL [Concomitant]
     Route: 065

REACTIONS (1)
  - Death [Fatal]
